FAERS Safety Report 4542402-9 (Version None)
Quarter: 2004Q4

REPORT INFORMATION
  Report Type: 
  Country: None (occurrence: None)
  Receive Date: 20041227
  Receipt Date: 20041216
  Transmission Date: 20050328
  Serious: Yes (Hospitalization)
  Sender: FDA-Public Use
  Company Number: 2004117201

PATIENT
  Age: 60 Year
  Sex: Female

DRUGS (26)
  1. LINEZOLID TABLET (LINEZOLID) [Suspect]
     Indication: STAPHYLOCOCCAL INFECTION
     Dosage: 1200 MG (600 MG, BID, EVERY DAY), ORAL
     Route: 048
     Dates: start: 20041202
  2. PAROXETINE HCL [Suspect]
     Indication: ILL-DEFINED DISORDER
     Dosage: 10 MG, DAILY
  3. PRAVASTATIN SODIUM [Suspect]
     Indication: ILL-DEFINED DISORDER
  4. METOPROLOL TARTRATE [Suspect]
     Indication: ILL-DEFINED DISORDER
  5. LISINOPRIL [Suspect]
     Indication: ILL-DEFINED DISORDER
  6. PANTOPRAZOLE (PANTOPRAZOLE) [Concomitant]
  7. ISOSORBIDE DINITRATE [Concomitant]
  8. NITROGLYCERIN [Concomitant]
  9. INSULIN LISPRO (INSULIN LISPRO) [Concomitant]
  10. MACROGOL (MACROGOL) [Concomitant]
  11. FLEET ENEMA (SODIUM PHOSPHATE, SODIUM PHOSPHATE DIBASIC) [Concomitant]
  12. DOCUSATE (DOCUSATE) [Concomitant]
  13. HEPARIN [Concomitant]
  14. HYDROCORTISONE [Concomitant]
  15. HYDROCODONE BITARTRATE (HYDROCODONE BITARTRATE) [Concomitant]
  16. LORAZEPAM [Concomitant]
  17. ISOPHANE INSULIN [Concomitant]
  18. MAGNESIUM HYDROXIDE (MAGNESIUM HYDROXIDE) [Concomitant]
  19. METOCLOPRAMIDE [Concomitant]
  20. TRIAMCINOLONE [Concomitant]
  21. TRIMETHOBENZAMIDE HYDROCHLORIDE (TRIMETHOBENZAMIDE HYDROCHLORIDE) [Concomitant]
  22. ACETAMINOPHEN [Concomitant]
  23. PHENYTOIN [Concomitant]
  24. ASPIRIN [Concomitant]
  25. BACITRACIN (BACITRACIN) [Concomitant]
  26. INSULIN GLARGINE (INSULIN GLARGINE) [Concomitant]

REACTIONS (1)
  - FACE OEDEMA [None]
